FAERS Safety Report 7434517-2 (Version None)
Quarter: 2011Q2

REPORT INFORMATION
  Report Type: 
  Country: None (occurrence: None)
  Receive Date: 20110425
  Receipt Date: 20110412
  Transmission Date: 20111010
  Serious: Yes (Other)
  Sender: FDA-Public Use
  Company Number: US-AMGEN-USASP2011017234

PATIENT
  Age: 43 Year
  Sex: Female

DRUGS (3)
  1. ENBREL [Suspect]
     Indication: OSTEOARTHRITIS
  2. GOLIMUMAB [Concomitant]
  3. ENBREL [Suspect]
     Indication: RHEUMATOID ARTHRITIS
     Dosage: 50 MG, QWK
     Dates: start: 20050301

REACTIONS (12)
  - OSTEOARTHRITIS [None]
  - INJECTION SITE REACTION [None]
  - WEIGHT INCREASED [None]
  - CRYING [None]
  - BACK PAIN [None]
  - NERVOUSNESS [None]
  - CARPAL TUNNEL SYNDROME [None]
  - FATIGUE [None]
  - INJECTION SITE ERYTHEMA [None]
  - ARTHRALGIA [None]
  - FALL [None]
  - INJECTION SITE PAIN [None]
